FAERS Safety Report 8176086-8 (Version None)
Quarter: 2012Q1

REPORT INFORMATION
  Report Type: 
  Country: None (occurrence: None)
  Receive Date: 20120301
  Receipt Date: 20120222
  Transmission Date: 20120608
  Serious: Yes (Life-Threatening, Hospitalization)
  Sender: FDA-Public Use
  Company Number: FR-CELGENEUS-056-C5013-11062633

PATIENT
  Sex: Male
  Weight: 72 kg

DRUGS (16)
  1. ZOLADEX [Concomitant]
     Indication: PROSTATE CANCER
     Route: 058
     Dates: start: 20101201
  2. ACETAMINOPHEN [Concomitant]
     Indication: BONE PAIN
     Dosage: 1000 MILLIGRAM
     Route: 048
     Dates: start: 20110419
  3. BIPERIDYS [Concomitant]
     Indication: NAUSEA
     Dosage: 60 GRAM
     Route: 048
     Dates: start: 20110604
  4. ONDANSETRON [Concomitant]
     Indication: PROPHYLAXIS
     Dosage: 8 MILLIGRAM
     Route: 041
     Dates: start: 20110606, end: 20110606
  5. PREDNISONE TAB [Suspect]
     Indication: PROSTATE CANCER
     Dosage: 10 MILLIGRAM
     Route: 065
     Dates: start: 20110606, end: 20110612
  6. POLYETHYLENE GLYCOL [Concomitant]
     Indication: CONSTIPATION
     Dosage: 20 GRAM
     Route: 048
     Dates: start: 20110530
  7. LENALIDOMIDE [Suspect]
     Indication: PROSTATE CANCER
     Dosage: 25 MILLIGRAM
     Route: 048
     Dates: start: 20110606, end: 20110612
  8. CORTICOSTEROIDS [Concomitant]
     Route: 065
  9. MORPHINE SULFATE [Concomitant]
     Indication: BONE PAIN
     Dosage: 60 MILLIGRAM
     Route: 048
     Dates: start: 20110530, end: 20110604
  10. PERIDYS [Concomitant]
     Dosage: 30 MILLIGRAM
     Route: 048
     Dates: start: 20110530, end: 20110604
  11. MORPHINE SULFATE [Concomitant]
     Indication: PAIN
     Route: 048
     Dates: start: 20110106
  12. LASIX [Concomitant]
     Dosage: 20 MILLIGRAM
     Route: 048
     Dates: start: 20110530, end: 20110604
  13. SOPHIDONE [Concomitant]
     Indication: PAIN
     Dosage: 16 MILLIGRAM
     Route: 048
     Dates: start: 20110604
  14. PERIDYS [Concomitant]
     Indication: NAUSEA
     Dosage: 60 GRAM
     Route: 048
     Dates: start: 20110604
  15. DOCETAXEL [Suspect]
     Indication: PROSTATE CANCER
     Dosage: 140 MILLIGRAM
     Route: 065
     Dates: start: 20110606, end: 20110606
  16. PREDNISOLONE [Concomitant]
     Indication: PROPHYLAXIS
     Dosage: 100 MILLIGRAM
     Route: 048
     Dates: start: 20110605, end: 20110607

REACTIONS (2)
  - FEBRILE BONE MARROW APLASIA [None]
  - SEPTIC SHOCK [None]
